FAERS Safety Report 20710624 (Version 1)
Quarter: 2022Q2

REPORT INFORMATION
  Report Type: Spontaneous
  Country: JP (occurrence: JP)
  Receive Date: 20220414
  Receipt Date: 20220414
  Transmission Date: 20220721
  Serious: Yes (Other)
  Sender: FDA-Public Use
  Company Number: JP-PFIZER INC-202200541962

PATIENT
  Age: 19 Year
  Sex: Female

DRUGS (2)
  1. PAXLOVID [Suspect]
     Active Substance: NIRMATRELVIR\RITONAVIR
     Indication: COVID-19 treatment
     Dosage: [PF-07321332 600MG/DAY]/[RITONAVIR 200MG/DAY]
     Route: 048
     Dates: start: 20220406, end: 20220408
  2. PREDONINE [Concomitant]
     Active Substance: PREDNISOLONE
     Indication: Glomerulonephritis
     Dosage: 2.5MG TO 5MG, DAILY
     Route: 048
     Dates: start: 20191226

REACTIONS (2)
  - Neutrophil count decreased [Unknown]
  - Dysgeusia [Recovering/Resolving]

NARRATIVE: CASE EVENT DATE: 20220408
